FAERS Safety Report 25037962 (Version 1)
Quarter: 2025Q1

REPORT INFORMATION
  Report Type: Spontaneous
  Country: US (occurrence: US)
  Receive Date: 20250304
  Receipt Date: 20250304
  Transmission Date: 20250408
  Serious: Yes (Hospitalization)
  Sender: DOMPE FARMACEUTICI
  Company Number: US-FARMAPROD-202501-0140

PATIENT
  Sex: Female

DRUGS (3)
  1. OXERVATE [Suspect]
     Active Substance: CENEGERMIN-BKBJ
     Indication: Illness
     Route: 047
     Dates: start: 20241218
  2. GABAPENTIN [Concomitant]
     Active Substance: GABAPENTIN
  3. PERCOCET [Concomitant]
     Active Substance: ACETAMINOPHEN\OXYCODONE HYDROCHLORIDE

REACTIONS (5)
  - Fungal skin infection [Unknown]
  - Eye pain [Unknown]
  - Foreign body sensation in eyes [Unknown]
  - Wrong technique in product usage process [Unknown]
  - Therapy interrupted [Unknown]
